FAERS Safety Report 4794426-4 (Version None)
Quarter: 2005Q4

REPORT INFORMATION
  Report Type: 
  Country: None (occurrence: None)
  Receive Date: 20051011
  Receipt Date: 20050929
  Transmission Date: 20060501
  Serious: Yes (Other)
  Sender: FDA-Public Use
  Company Number: US-ROCHE-419711

PATIENT
  Age: 48 Year
  Sex: Male

DRUGS (4)
  1. KYTRIL [Suspect]
     Indication: DRUG USE FOR UNKNOWN INDICATION
     Route: 042
  2. CHEMOTHERAPY NOS [Suspect]
     Dosage: CHEMOTHERAPY TRIPLE REGIMEN (NOS)
     Route: 065
  3. ZOFRAN [Concomitant]
  4. MULTIPLE OTHER MEDICATIONS [Concomitant]

REACTIONS (2)
  - CONDITION AGGRAVATED [None]
  - CONVULSION [None]
